FAERS Safety Report 4350932-8 (Version None)
Quarter: 2004Q2

REPORT INFORMATION
  Report Type: 
  Country: None (occurrence: None)
  Receive Date: 20040430
  Receipt Date: 20040223
  Transmission Date: 20050107
  Serious: Yes (Hospitalization, Other)
  Sender: FDA-Public Use
  Company Number: NL-GLAXOSMITHKLINE-B0324294A

PATIENT
  Age: 51 Year
  Sex: Female

DRUGS (5)
  1. LAMOTRIGINE [Suspect]
     Indication: EPILEPSY
     Dosage: 200MG PER DAY
     Route: 048
  2. CLOMIPRAMINE HCL [Concomitant]
  3. LORAZEPAM [Concomitant]
     Dosage: 3MG PER DAY
  4. ZUCLOPENTHIXOL [Concomitant]
  5. VALPROIC ACID [Concomitant]
     Dosage: 1000MG PER DAY
     Route: 048

REACTIONS (4)
  - CYANOSIS [None]
  - FEELING ABNORMAL [None]
  - HEART RATE IRREGULAR [None]
  - LOSS OF CONSCIOUSNESS [None]
